FAERS Safety Report 9412363 (Version 1)
Quarter: 2013Q3

REPORT INFORMATION
  Report Type: Spontaneous
  Country: US (occurrence: US)
  Receive Date: 20130722
  Receipt Date: 20130722
  Transmission Date: 20140515
  Serious: No
  Sender: FDA-Public Use
  Company Number: US-BAUSCH-BL-2013-000657

PATIENT
  Age: 63 Year
  Sex: Female

DRUGS (5)
  1. ISTALOL [Suspect]
     Indication: GLAUCOMA
     Dosage: 1 DROP; 1X DAILY; OPHTHALMIC
     Route: 047
     Dates: start: 201103, end: 20120408
  2. LUMIGAN [Concomitant]
     Indication: GLAUCOMA
     Route: 047
  3. TURMERIC [Concomitant]
     Route: 048
  4. GINGER /01646602/ [Concomitant]
     Route: 048
  5. TEA, GREEN [Concomitant]
     Route: 048

REACTIONS (3)
  - Dizziness [Recovered/Resolved]
  - Blood pressure increased [Unknown]
  - Asthenia [Recovering/Resolving]
